FAERS Safety Report 22370340 (Version 2)
Quarter: 2024Q2

REPORT INFORMATION
  Report Type: Spontaneous
  Country: US (occurrence: US)
  Receive Date: 20230526
  Receipt Date: 20240530
  Transmission Date: 20240716
  Serious: Yes (Other)
  Sender: FDA-Public Use
  Company Number: US-IGSA-BIG0023454

PATIENT
  Age: 60 Year
  Sex: Female
  Weight: 95.238 kg

DRUGS (9)
  1. XEMBIFY [Suspect]
     Active Substance: HUMAN IMMUNOGLOBULIN G
     Indication: Chronic inflammatory demyelinating polyradiculoneuropathy
     Dosage: 16 GRAM, T.I.WK.
     Route: 058
     Dates: start: 20230515
  2. XEMBIFY [Suspect]
     Active Substance: HUMAN IMMUNOGLOBULIN G
     Dosage: 16 GRAM, T.I.WK.
     Route: 058
     Dates: start: 20230519
  3. XEMBIFY [Suspect]
     Active Substance: HUMAN IMMUNOGLOBULIN G
     Dosage: 16 GRAM, T.I.WK.
     Route: 058
     Dates: start: 2021
  4. XEMBIFY [Suspect]
     Active Substance: HUMAN IMMUNOGLOBULIN G
     Dosage: 16 GRAM, T.I.WK.
     Route: 058
     Dates: start: 20240520
  5. LYRICA [Concomitant]
     Active Substance: PREGABALIN
     Dosage: 225 MILLIGRAM, QD
  6. AMITRIPTYLINE [Concomitant]
     Active Substance: AMITRIPTYLINE
     Dosage: 75 MILLIGRAM, QD
  7. ESTRADIOL [Concomitant]
     Active Substance: ESTRADIOL
     Dosage: UNK UNK, B.I.WK.
  8. SIMVASTATIN [Concomitant]
     Active Substance: SIMVASTATIN
     Dosage: 10 MILLIGRAM, QD
  9. PREGABALIN [Concomitant]
     Active Substance: PREGABALIN

REACTIONS (5)
  - COVID-19 [Recovered/Resolved]
  - Sputum discoloured [Recovered/Resolved]
  - Fibrin D dimer increased [Not Recovered/Not Resolved]
  - Blood fibrinogen increased [Not Recovered/Not Resolved]
  - Troponin increased [Not Recovered/Not Resolved]

NARRATIVE: CASE EVENT DATE: 20221201
